FAERS Safety Report 21963484 (Version 1)
Quarter: 2023Q1

REPORT INFORMATION
  Report Type: Spontaneous
  Country: US (occurrence: None)
  Receive Date: 20230207
  Receipt Date: 20230207
  Transmission Date: 20230417
  Serious: No
  Sender: FDA-Public Use
  Company Number: None

PATIENT
  Age: 65 Year
  Sex: Male

DRUGS (2)
  1. EMPAGLIFLOZIN [Suspect]
     Active Substance: EMPAGLIFLOZIN
     Route: 048
  2. NOVOLOG [Suspect]
     Active Substance: INSULIN ASPART

REACTIONS (5)
  - Duplicate therapy error [None]
  - Hypoglycaemia [None]
  - Pancreatitis [None]
  - Starvation ketoacidosis [None]
  - Wrong product administered [None]

NARRATIVE: CASE EVENT DATE: 20210531
